FAERS Safety Report 17835100 (Version 1)
Quarter: 2020Q2

REPORT INFORMATION
  Report Type: Report from Study
  Country: DE (occurrence: DE)
  Receive Date: 20200528
  Receipt Date: 20200528
  Transmission Date: 20200714
  Serious: Yes (Death)
  Sender: FDA-Public Use
  Company Number: DE-MYLANLABS-2020M1052025

PATIENT
  Sex: Female

DRUGS (3)
  1. BEVACIZUMAB. [Suspect]
     Active Substance: BEVACIZUMAB
     Indication: OVARIAN CANCER RECURRENT
     Dosage: 15 MILLIGRAM/KILOGRAM, BEVACIZUMAB 15 MG/KG ON DAY 1...
     Route: 042
  2. CARBOPLATIN. [Suspect]
     Active Substance: CARBOPLATIN
     Indication: OVARIAN CANCER RECURRENT
     Dosage: CARBOPLATIN AREA UNDER THE CONCENTRATION CURVE (AUC) 4 ON DAY 1...
     Route: 042
  3. GEMCITABINE. [Suspect]
     Active Substance: GEMCITABINE
     Indication: OVARIAN CANCER RECURRENT
     Dosage: 1000 MILLIGRAM/SQ. METER, GEMCITABINE 1000 MG/ME2 ON DAYS 1 AND 8..
     Route: 042

REACTIONS (1)
  - Osmotic demyelination syndrome [Fatal]
